FAERS Safety Report 8370807-7 (Version None)
Quarter: 2012Q2

REPORT INFORMATION
  Report Type: 
  Country: None (occurrence: None)
  Receive Date: 20120518
  Receipt Date: 20111107
  Transmission Date: 20120825
  Serious: No
  Sender: FDA-Public Use
  Company Number: US-ASTRAZENECA-2011SE73724

PATIENT
  Age: 82 Year
  Sex: Female

DRUGS (2)
  1. NOT SPECIFIED [Concomitant]
  2. PRILOSEC OTC [Suspect]
     Indication: PRODUCT USED FOR UNKNOWN INDICATION
     Dosage: 1 TABLET, EVENING
     Route: 048
     Dates: start: 20111031, end: 20111031

REACTIONS (3)
  - DIARRHOEA [None]
  - HEADACHE [None]
  - INAPPROPRIATE SCHEDULE OF DRUG ADMINISTRATION [None]
